FAERS Safety Report 6758027-0 (Version None)
Quarter: 2010Q2

REPORT INFORMATION
  Report Type: 
  Country: None (occurrence: None)
  Receive Date: 20100607
  Receipt Date: 20100524
  Transmission Date: 20101027
  Serious: Yes (Other)
  Sender: FDA-Public Use
  Company Number: ES-ELI_LILLY_AND_COMPANY-ES201005006904

PATIENT
  Sex: Female
  Weight: 38 kg

DRUGS (4)
  1. FORTEO [Suspect]
     Indication: OSTEOPOROSIS
     Dosage: 20 UG, DAILY (1/D)
     Route: 058
     Dates: start: 20090401
  2. ZARATOR [Concomitant]
     Dosage: 40 D/F, DAILY (1/D)
     Route: 048
  3. ZAMENE [Concomitant]
     Dosage: UNK, AS NEEDED
     Route: 048
  4. NATECAL D [Concomitant]
     Dosage: UNK, 2/D
     Route: 048

REACTIONS (3)
  - DRUG INEFFECTIVE [None]
  - HYPERCHOLESTEROLAEMIA [None]
  - SPINAL FRACTURE [None]
